FAERS Safety Report 13945540 (Version 1)
Quarter: 2017Q3

REPORT INFORMATION
  Report Type: Spontaneous
  Country: IT (occurrence: IT)
  Receive Date: 20170907
  Receipt Date: 20170907
  Transmission Date: 20171128
  Serious: Yes (Other)
  Sender: FDA-Public Use
  Company Number: IT-ELI_LILLY_AND_COMPANY-IT201708012003

PATIENT
  Age: 83 Year
  Sex: Male
  Weight: 56 kg

DRUGS (2)
  1. CYRAMZA [Suspect]
     Active Substance: RAMUCIRUMAB
     Indication: OESOPHAGEAL ADENOCARCINOMA
     Dosage: 330 MG, CYCLICAL
     Route: 042
     Dates: start: 20160822
  2. TAXOL [Suspect]
     Active Substance: PACLITAXEL
     Indication: OESOPHAGEAL ADENOCARCINOMA
     Dosage: 90 MG, CYCLICAL
     Route: 042
     Dates: start: 20160822

REACTIONS (1)
  - Visual field defect [Recovering/Resolving]

NARRATIVE: CASE EVENT DATE: 20170110
